FAERS Safety Report 9596409 (Version 2)
Quarter: 2013Q4

REPORT INFORMATION
  Report Type: Spontaneous
  Country: US (occurrence: US)
  Receive Date: 20131004
  Receipt Date: 20131007
  Transmission Date: 20140711
  Serious: Yes (Death, Hospitalization)
  Sender: FDA-Public Use
  Company Number: US-JNJFOC-20131001458

PATIENT
  Age: 7 Decade
  Sex: Male

DRUGS (2)
  1. REMICADE [Suspect]
     Indication: COLITIS ULCERATIVE
     Dosage: LAST DOSE WAS ADMINISTERED 6 WEEKS PRIOR TO THE DATE OF REPORT
     Route: 042
     Dates: start: 2013
  2. REMICADE [Suspect]
     Indication: COLITIS ULCERATIVE
     Route: 042

REACTIONS (3)
  - Myocardial infarction [Fatal]
  - Haemorrhage [Fatal]
  - Surgery [Unknown]
